FAERS Safety Report 4301617-5 (Version None)
Quarter: 2004Q1

REPORT INFORMATION
  Report Type: 
  Country: None (occurrence: None)
  Receive Date: 20040219
  Receipt Date: 20040211
  Transmission Date: 20041129
  Serious: Yes (Life-Threatening, Hospitalization, Other)
  Sender: FDA-Public Use
  Company Number: HQWYE4605008DEC03

PATIENT
  Age: 36 Year
  Sex: Female

DRUGS (5)
  1. EFFEXOR XR [Suspect]
     Indication: PSYCHOTIC DISORDER
     Dosage: 75 MG 1X PER 1 DAY
     Route: 048
     Dates: start: 20030210, end: 20030820
  2. EFFEXOR XR [Suspect]
     Indication: PSYCHOTIC DISORDER
     Dosage: 75 MG 1X PER 1 DAY
     Route: 048
     Dates: start: 20030821
  3. OXAZEPAM [Concomitant]
  4. INDERAL [Concomitant]
  5. INDERAL [Concomitant]

REACTIONS (4)
  - CONDITION AGGRAVATED [None]
  - PALPITATIONS [None]
  - SUPRAVENTRICULAR TACHYCARDIA [None]
  - TACHYCARDIA PAROXYSMAL [None]
